FAERS Safety Report 20442165 (Version 1)
Quarter: 2022Q1

REPORT INFORMATION
  Report Type: Spontaneous
  Country: US (occurrence: US)
  Receive Date: 20220208
  Receipt Date: 20220208
  Transmission Date: 20220423
  Serious: No
  Sender: FDA-Public Use
  Company Number: US-GLENMARK PHARMACEUTICALS-2021GMK067483

PATIENT

DRUGS (1)
  1. ALYACEN 1/35 [Suspect]
     Active Substance: ETHINYL ESTRADIOL\NORETHINDRONE
     Indication: Oral contraception
     Dosage: UNK
     Route: 048

REACTIONS (4)
  - Hyperhidrosis [Unknown]
  - Feeling hot [Unknown]
  - Hot flush [Unknown]
  - Skin burning sensation [Unknown]
